FAERS Safety Report 16254931 (Version 1)
Quarter: 2019Q2

REPORT INFORMATION
  Report Type: Report from Study
  Country: US (occurrence: US)
  Receive Date: 20190430
  Receipt Date: 20190430
  Transmission Date: 20190711
  Serious: Yes (Disabling, Other)
  Sender: FDA-Public Use
  Company Number: US-SA-2019SA115663

PATIENT
  Age: 63 Year
  Sex: Male

DRUGS (1)
  1. INSULIN GLARGINE [Suspect]
     Active Substance: INSULIN GLARGINE
     Indication: TYPE 2 DIABETES MELLITUS
     Dosage: 50 U, BID
     Dates: start: 2014

REACTIONS (5)
  - Intervertebral disc protrusion [Not Recovered/Not Resolved]
  - Blood glucose increased [Unknown]
  - Back pain [Not Recovered/Not Resolved]
  - Product dose omission [Unknown]
  - Nerve compression [Not Recovered/Not Resolved]

NARRATIVE: CASE EVENT DATE: 20180315
